FAERS Safety Report 7937965-7 (Version None)
Quarter: 2011Q4

REPORT INFORMATION
  Report Type: 
  Country: None (occurrence: None)
  Receive Date: 20111123
  Receipt Date: 20111117
  Transmission Date: 20120403
  Serious: No
  Sender: FDA-Public Use
  Company Number: US-B.I. PHARMACEUTICALS,INC./RIDGEFIELD-2011-BP-26533BP

PATIENT
  Age: 6 Decade
  Sex: Female

DRUGS (4)
  1. GLIMEPIRIDE [Concomitant]
     Dosage: 4 MG
  2. DIOVAN [Concomitant]
  3. HYDROCHLOROTHIAZIDE [Concomitant]
  4. TRADJENTA [Suspect]
     Indication: DIABETES MELLITUS
     Route: 048

REACTIONS (1)
  - URTICARIA [None]
